FAERS Safety Report 9676688 (Version 2)
Quarter: 2014Q1

REPORT INFORMATION
  Report Type: Spontaneous
  Country: US (occurrence: US)
  Receive Date: 20131107
  Receipt Date: 20140120
  Transmission Date: 20141002
  Serious: Yes (Other)
  Sender: FDA-Public Use
  Company Number: US-SA-2013SA114190

PATIENT
  Age: 55 Year
  Sex: Male

DRUGS (2)
  1. LANTUS [Suspect]
     Dosage: DOSE - 12 TO 14 UNITS
     Route: 051
  2. HUMALOG [Suspect]
     Route: 065

REACTIONS (5)
  - Rotator cuff syndrome [Unknown]
  - Disability [Unknown]
  - Haematuria [Unknown]
  - Blood glucose decreased [Unknown]
  - Drug ineffective [Unknown]
